FAERS Safety Report 9999016 (Version 2)
Quarter: 2014Q2

REPORT INFORMATION
  Report Type: Report from Study
  Country: DE (occurrence: DE)
  Receive Date: 20140312
  Receipt Date: 20140521
  Transmission Date: 20141212
  Serious: Yes (Life-Threatening)
  Sender: FDA-Public Use
  Company Number: DE-AMGEN-DEUCT2014016665

PATIENT
  Age: 53 Year
  Sex: Female

DRUGS (6)
  1. ETANERCEPT [Suspect]
     Indication: PRODUCT USED FOR UNKNOWN INDICATION
     Dosage: 50 MG, SINGLE
     Route: 065
     Dates: start: 20140226, end: 20140226
  2. PREDNISOLONE [Concomitant]
     Dosage: UNK
  3. NOVAMINSULFON [Concomitant]
     Dosage: UNK
  4. TILIDINE [Concomitant]
     Dosage: UNK
  5. DEKRISTOL [Concomitant]
     Dosage: UNK
  6. PANTOPRAZOLE [Concomitant]
     Dosage: UNK

REACTIONS (2)
  - Cough [Not Recovered/Not Resolved]
  - Pruritus [Not Recovered/Not Resolved]
